FAERS Safety Report 12586919 (Version 2)
Quarter: 2016Q3

REPORT INFORMATION
  Report Type: Spontaneous
  Country: US (occurrence: US)
  Receive Date: 20160725
  Receipt Date: 20160909
  Transmission Date: 20161109
  Serious: No
  Sender: FDA-Public Use
  Company Number: US-PFIZER INC-2016356551

PATIENT
  Age: 58 Year
  Sex: Female

DRUGS (1)
  1. MEDROL [Suspect]
     Active Substance: METHYLPREDNISOLONE
     Indication: POISONING
     Dosage: UNK
     Route: 048
     Dates: start: 201606

REACTIONS (1)
  - Drug effect incomplete [Unknown]
